FAERS Safety Report 22019235 (Version 3)
Quarter: 2023Q1

REPORT INFORMATION
  Report Type: Spontaneous
  Country: FR (occurrence: FR)
  Receive Date: 20230222
  Receipt Date: 20230310
  Transmission Date: 20230418
  Serious: Yes (Other)
  Sender: FDA-Public Use
  Company Number: None

PATIENT
  Age: 18 Year
  Sex: Male

DRUGS (5)
  1. LEVETIRACETAM [Suspect]
     Active Substance: LEVETIRACETAM
     Indication: Epilepsy
     Dosage: UNK
  2. DIAZEPAM [Concomitant]
     Active Substance: DIAZEPAM
     Indication: Behaviour disorder
     Dosage: 30 MILLIGRAM, ONCE DAILY (QD)
  3. DIAZEPAM [Concomitant]
     Active Substance: DIAZEPAM
     Indication: Epilepsy
  4. LACOSAMIDE [Concomitant]
     Active Substance: LACOSAMIDE
     Indication: Epilepsy
     Dosage: UNK
  5. LAMOTRIGINE [Concomitant]
     Active Substance: LAMOTRIGINE
     Indication: Epilepsy
     Dosage: UNK

REACTIONS (6)
  - Pneumonia [Unknown]
  - Parkinsonism [Not Recovered/Not Resolved]
  - Epilepsy [Not Recovered/Not Resolved]
  - Infection [Unknown]
  - Behaviour disorder [Unknown]
  - Drug ineffective [Unknown]
